FAERS Safety Report 18570921 (Version 1)
Quarter: 2020Q4

REPORT INFORMATION
  Report Type: Spontaneous
  Country: US (occurrence: US)
  Receive Date: 20201201
  Receipt Date: 20201201
  Transmission Date: 20210114
  Serious: Yes (Hospitalization)
  Sender: FDA-Public Use
  Company Number: None

PATIENT
  Age: 67 Year
  Sex: Male
  Weight: 115.2 kg

DRUGS (23)
  1. ASPIRIN. [Concomitant]
     Active Substance: ASPIRIN
  2. GABAPENTIN. [Concomitant]
     Active Substance: GABAPENTIN
  3. CARVEDILOL. [Concomitant]
     Active Substance: CARVEDILOL
  4. CRESTOR [Concomitant]
     Active Substance: ROSUVASTATIN CALCIUM
  5. DILTIAZEM. [Concomitant]
     Active Substance: DILTIAZEM
  6. LISINOPRIL. [Concomitant]
     Active Substance: LISINOPRIL
  7. ALLOPURINOL. [Concomitant]
     Active Substance: ALLOPURINOL
  8. DEXAMETHASONE. [Concomitant]
     Active Substance: DEXAMETHASONE
  9. JARDIANCE [Concomitant]
     Active Substance: EMPAGLIFLOZIN
  10. METOPROLOL. [Concomitant]
     Active Substance: METOPROLOL
  11. PEPCID [Concomitant]
     Active Substance: FAMOTIDINE
  12. TRULICITY [Concomitant]
     Active Substance: DULAGLUTIDE
  13. CISPLATIN (119875) [Suspect]
     Active Substance: CISPLATIN
     Dates: end: 20200928
  14. FLUCONAZOLE. [Concomitant]
     Active Substance: FLUCONAZOLE
  15. ELIQUIS [Concomitant]
     Active Substance: APIXABAN
  16. TOPICAL HYDROCORTISONE CREAM [Concomitant]
     Active Substance: HYDROCORTISONE
  17. ANORO INHALER [Concomitant]
  18. CLOPIDOGREL [Concomitant]
     Active Substance: CLOPIDOGREL BISULFATE
  19. LANTUS [Concomitant]
     Active Substance: INSULIN GLARGINE
  20. FLOMAX [Concomitant]
     Active Substance: TAMSULOSIN HYDROCHLORIDE
  21. LOTRIMIN CREAM [Concomitant]
  22. TRIAMTERENE HCTZ [Concomitant]
     Active Substance: HYDROCHLOROTHIAZIDE\TRIAMTERENE
  23. TYLENOL [Concomitant]
     Active Substance: ACETAMINOPHEN

REACTIONS (17)
  - Klebsiella test positive [None]
  - Scab [None]
  - Device related infection [None]
  - Granulomatous lymphadenitis [None]
  - Catheter site swelling [None]
  - Catheter site irritation [None]
  - Catheter site abscess [None]
  - Sepsis [None]
  - Pruritus [None]
  - Skin candida [None]
  - Therapeutic product effect incomplete [None]
  - Pseudomonas test positive [None]
  - Catheter site haemorrhage [None]
  - Lymphadenopathy [None]
  - Catheter site oedema [None]
  - Catheter site erythema [None]
  - Fungal skin infection [None]

NARRATIVE: CASE EVENT DATE: 20201027
